FAERS Safety Report 21314694 (Version 1)
Quarter: 2022Q3

REPORT INFORMATION
  Report Type: Spontaneous
  Country: US (occurrence: None)
  Receive Date: 20220909
  Receipt Date: 20220909
  Transmission Date: 20221027
  Serious: No
  Sender: FDA-Public Use
  Company Number: US-ARIS GLOBAL-202110-1935

PATIENT
  Sex: Male

DRUGS (15)
  1. OXERVATE [Suspect]
     Active Substance: CENEGERMIN-BKBJ
     Indication: Neurotrophic keratopathy
     Route: 047
     Dates: start: 20211018
  2. ELIQUIS [Concomitant]
     Active Substance: APIXABAN
  3. ASCORBIC ACID\CYANOCOBALAMIN\FOLIC ACID\IRON [Concomitant]
     Active Substance: ASCORBIC ACID\CYANOCOBALAMIN\FOLIC ACID\IRON
     Dosage: 100-250-1
  4. JARDIANCE [Concomitant]
     Active Substance: EMPAGLIFLOZIN
  5. ELIQUIS [Concomitant]
     Active Substance: APIXABAN
  6. ROSUVASTATIN CALCIUM [Concomitant]
     Active Substance: ROSUVASTATIN CALCIUM
  7. COLACE [Concomitant]
     Active Substance: DOCUSATE SODIUM
  8. GLIPIZIDE [Concomitant]
     Active Substance: GLIPIZIDE
  9. EZETIMIBE [Concomitant]
     Active Substance: EZETIMIBE
  10. CARVEDILOL [Concomitant]
     Active Substance: CARVEDILOL
  11. THIAMINE HYDROCHLORIDE [Concomitant]
     Active Substance: THIAMINE HYDROCHLORIDE
  12. FISH OIL [Concomitant]
     Active Substance: FISH OIL
     Dosage: 100-150 MG
  13. ASPIRIN [Concomitant]
     Active Substance: ASPIRIN
  14. VITAMIN D-400 [Concomitant]
  15. TOBRAMYCIN AND DEXAMETHASONE [Concomitant]
     Active Substance: DEXAMETHASONE\TOBRAMYCIN

REACTIONS (1)
  - Eye pain [Unknown]
